FAERS Safety Report 11403244 (Version 1)
Quarter: 2015Q3

REPORT INFORMATION
  Report Type: Spontaneous
  Country: US (occurrence: None)
  Receive Date: 20150812
  Receipt Date: 20150812
  Transmission Date: 20151125
  Serious: No
  Sender: FDA-Public Use
  Company Number: 1506USA008226

PATIENT
  Age: 20 Year
  Sex: Male

DRUGS (1)
  1. RAGWITEK [Suspect]
     Active Substance: AMBROSIA ARTEMISIIFOLIA POLLEN
     Indication: SEASONAL ALLERGY
     Route: 048

REACTIONS (2)
  - Wrong technique in product usage process [None]
  - Pharyngeal oedema [None]

NARRATIVE: CASE EVENT DATE: 201506
